FAERS Safety Report 9870975 (Version 2)
Quarter: 2014Q1

REPORT INFORMATION
  Report Type: Spontaneous
  Country: ZA (occurrence: ZA)
  Receive Date: 20140205
  Receipt Date: 20140205
  Transmission Date: 20141002
  Serious: Yes (Other)
  Sender: FDA-Public Use
  Company Number: ZA-ELI_LILLY_AND_COMPANY-ZA201310008261

PATIENT
  Age: 34 Year
  Sex: Female

DRUGS (4)
  1. HUMALOG 25% LISPRO, 75% NPL [Suspect]
     Indication: GESTATIONAL DIABETES
     Dosage: 15 U, EACH MORNING
     Route: 065
     Dates: start: 20131024
  2. HUMALOG 25% LISPRO, 75% NPL [Suspect]
     Dosage: 8 U, EACH EVENING
     Route: 065
     Dates: start: 20131024
  3. METFORMIN [Concomitant]
     Indication: DIABETES MELLITUS
     Dosage: 500 MG, BID
     Dates: start: 20131024
  4. HY-PO-TONE [Concomitant]
     Indication: GESTATIONAL HYPERTENSION
     Dosage: 250 MG, UNKNOWN
     Dates: start: 201309

REACTIONS (1)
  - Maternal exposure during pregnancy [Recovered/Resolved]
